FAERS Safety Report 8809087 (Version 1)
Quarter: 2012Q4

REPORT INFORMATION
  Report Type: Report from Study
  Country: CA (occurrence: CA)
  Receive Date: 20120926
  Receipt Date: 20120926
  Transmission Date: 20130627
  Serious: Yes (Hospitalization)
  Sender: FDA-Public Use
  Company Number: CA-JNJFOC-20120907852

PATIENT
  Sex: Female
  Weight: 75.75 kg

DRUGS (1)
  1. REMICADE [Suspect]
     Indication: CROHN^S DISEASE
     Route: 042
     Dates: end: 20120301

REACTIONS (3)
  - Crohn^s disease [Unknown]
  - Joint lock [Unknown]
  - Hospitalisation [Unknown]
